FAERS Safety Report 8471613-5 (Version None)
Quarter: 2012Q2

REPORT INFORMATION
  Report Type: 
  Country: None (occurrence: None)
  Receive Date: 20120621
  Receipt Date: 20120605
  Transmission Date: 20120825
  Serious: Yes (Congenital Anomaly, Other)
  Sender: FDA-Public Use
  Company Number: FK201201636

PATIENT
  Sex: Female

DRUGS (2)
  1. METHOTREXATE [Suspect]
     Indication: ABORTION INDUCED
     Dosage: 50 MG/M2, TRANSPLACENTAL
     Route: 064
  2. MISOPROSTOL [Suspect]
     Indication: ABORTION INDUCED
     Dosage: 400 UG, TRANSPLACENTAL
     Route: 064

REACTIONS (9)
  - SYNOSTOSIS [None]
  - HIP DYSPLASIA [None]
  - MATERNAL DRUGS AFFECTING FOETUS [None]
  - JOINT LAXITY [None]
  - SMALL FOR DATES BABY [None]
  - CONGENITAL HAND MALFORMATION [None]
  - CONGENITAL JOINT MALFORMATION [None]
  - HYDROCEPHALUS [None]
  - TETHERED CORD SYNDROME [None]
